FAERS Safety Report 6533730-6 (Version None)
Quarter: 2010Q1

REPORT INFORMATION
  Report Type: 
  Country: None (occurrence: None)
  Receive Date: 20100111
  Receipt Date: 20090515
  Transmission Date: 20100710
  Serious: No
  Sender: FDA-Public Use
  Company Number: US-ABBOTT-09P-163-0574113-00

PATIENT
  Sex: Female
  Weight: 68.1 kg

DRUGS (2)
  1. VICODIN [Suspect]
     Indication: PAIN
     Dates: start: 20090305
  2. VICODIN [Suspect]

REACTIONS (4)
  - HALLUCINATION [None]
  - NIGHT SWEATS [None]
  - PANIC ATTACK [None]
  - VOMITING [None]
